FAERS Safety Report 15861177 (Version 1)
Quarter: 2019Q1

REPORT INFORMATION
  Report Type: Spontaneous
  Country: ES (occurrence: ES)
  Receive Date: 20190124
  Receipt Date: 20190124
  Transmission Date: 20190417
  Serious: Yes (Other)
  Sender: FDA-Public Use
  Company Number: ES-SAMSUNG BIOEPIS-SB-2019-01392

PATIENT
  Age: 26 Year
  Sex: Male

DRUGS (1)
  1. INFLIXIMAB [Suspect]
     Active Substance: INFLIXIMAB
     Indication: PRODUCT USED FOR UNKNOWN INDICATION
     Dosage: SPANISH: 400 MG CADA 2 SEMANAS IV;  ?ENGLISH: 400 MG EVERY 2 WEEKS IV
     Route: 042
     Dates: start: 20180327, end: 20180411

REACTIONS (3)
  - Pruritus [Recovered/Resolved]
  - Angioedema [Recovered/Resolved]
  - Dizziness [Recovered/Resolved]

NARRATIVE: CASE EVENT DATE: 20180411
